FAERS Safety Report 9132830 (Version 2)
Quarter: 2014Q1

REPORT INFORMATION
  Report Type: Report from Study
  Country: FR (occurrence: FR)
  Receive Date: 20130301
  Receipt Date: 20140305
  Transmission Date: 20141002
  Serious: Yes (Other)
  Sender: FDA-Public Use
  Company Number: FR-ROCHE-1196997

PATIENT
  Age: 31 Year
  Sex: Female

DRUGS (2)
  1. RITUXIMAB [Suspect]
     Indication: SPONDYLITIS
     Route: 065
  2. METHOTREXATE [Concomitant]
     Indication: SPONDYLITIS
     Route: 065

REACTIONS (2)
  - Psoriasis [Unknown]
  - Pyrexia [Unknown]
